FAERS Safety Report 7093922-7 (Version None)
Quarter: 2010Q4

REPORT INFORMATION
  Report Type: 
  Country: None (occurrence: None)
  Receive Date: 20101102
  Receipt Date: 20101018
  Transmission Date: 20110411
  Serious: Yes (Other)
  Sender: FDA-Public Use
  Company Number: 2010US000063

PATIENT
  Age: 81 Year
  Sex: Female

DRUGS (11)
  1. ENTEREG [Suspect]
     Indication: POSTOPERATIVE ILEUS
     Dosage: 12 MG; 1X; PO
     Route: 048
     Dates: start: 20100727, end: 20100728
  2. PLAVIX [Concomitant]
  3. FOSAMAX [Concomitant]
  4. LEXAPRO [Concomitant]
  5. LASIX [Concomitant]
  6. DILAUDID [Concomitant]
  7. PRILOSEC [Concomitant]
  8. POTASSIUM CHLORIDE [Concomitant]
  9. CRESTOR [Concomitant]
  10. XANAX [Concomitant]
  11. ASA [Concomitant]

REACTIONS (5)
  - ACUTE CORONARY SYNDROME [None]
  - AORTIC VALVE CALCIFICATION [None]
  - AORTIC VALVE SCLEROSIS [None]
  - MYOCARDIAL INFARCTION [None]
  - PALPITATIONS [None]
